FAERS Safety Report 22067131 (Version 1)
Quarter: 2023Q1

REPORT INFORMATION
  Report Type: Spontaneous
  Country: US (occurrence: US)
  Receive Date: 20230307
  Receipt Date: 20230307
  Transmission Date: 20230417
  Serious: No
  Sender: FDA-Public Use
  Company Number: US-ABBVIE-4281476

PATIENT
  Age: 71 Year
  Sex: Female

DRUGS (1)
  1. LEVOTHYROXINE [Suspect]
     Active Substance: LEVOTHYROXINE
     Indication: Product used for unknown indication
     Dosage: FORM STRENGTH: 100 MILLIGRAM
     Route: 048

REACTIONS (7)
  - Palpitations [Recovering/Resolving]
  - Urticaria [Unknown]
  - Headache [Recovering/Resolving]
  - Unevaluable event [Unknown]
  - Musculoskeletal stiffness [Recovered/Resolved]
  - Hypertension [Unknown]
  - Pain [Unknown]

NARRATIVE: CASE EVENT DATE: 20230119
